FAERS Safety Report 10289178 (Version 1)
Quarter: 2014Q3

REPORT INFORMATION
  Report Type: Spontaneous
  Country: AT (occurrence: AT)
  Receive Date: 20140710
  Receipt Date: 20140710
  Transmission Date: 20150326
  Serious: Yes (Life-Threatening, Hospitalization)
  Sender: FDA-Public Use
  Company Number: AT-ROCHE-1431621

PATIENT
  Age: 40 Year
  Sex: Female

DRUGS (54)
  1. SEROQUEL [Suspect]
     Active Substance: QUETIAPINE FUMARATE
     Route: 048
     Dates: start: 20130426, end: 20130529
  2. SEROQUEL [Suspect]
     Active Substance: QUETIAPINE FUMARATE
     Route: 048
     Dates: start: 20130423, end: 20130424
  3. MIRTABENE [Concomitant]
     Active Substance: MIRTAZAPINE
     Route: 065
     Dates: start: 20130529
  4. IXEL [Concomitant]
     Active Substance: MILNACIPRAN HYDROCHLORIDE
     Route: 065
     Dates: start: 20130326, end: 20130408
  5. LOVENOX [Concomitant]
     Active Substance: ENOXAPARIN SODIUM
     Route: 065
     Dates: start: 20130514
  6. SOLUDACORTIN [Concomitant]
     Route: 042
     Dates: start: 20130518, end: 20130520
  7. BERODUAL [Concomitant]
     Active Substance: FENOTEROL HYDROBROMIDE\IPRATROPIUM BROMIDE
     Route: 065
     Dates: start: 20130515
  8. NOVALGIN (AUSTRIA) [Concomitant]
     Route: 042
     Dates: start: 20130528
  9. LYRICA [Concomitant]
     Active Substance: PREGABALIN
     Route: 065
     Dates: start: 20130523, end: 20130524
  10. LYRICA [Concomitant]
     Active Substance: PREGABALIN
     Route: 065
     Dates: start: 20130529
  11. SERETIDE [Concomitant]
     Active Substance: FLUTICASONE FUROATE\SALMETEROL XINAFOATE
     Dosage: SINCE MONTHS
     Route: 065
     Dates: start: 20130513
  12. PEGASYS [Suspect]
     Active Substance: PEGINTERFERON ALFA-2A
     Indication: PRODUCT USED FOR UNKNOWN INDICATION
     Dosage: SUNDAYS
     Route: 065
     Dates: end: 20130512
  13. CIPRALEX [Concomitant]
     Active Substance: ESCITALOPRAM OXALATE
     Dosage: 10 DAILY
     Route: 065
     Dates: start: 20130321, end: 20130328
  14. CIPRALEX [Concomitant]
     Active Substance: ESCITALOPRAM OXALATE
     Dosage: 20 DAILY
     Route: 065
     Dates: start: 20130529, end: 20130529
  15. AVELOX [Concomitant]
     Active Substance: MOXIFLOXACIN HYDROCHLORIDE
     Route: 065
     Dates: start: 20130509, end: 20130513
  16. APREDNISLON [Concomitant]
     Active Substance: PREDNISOLONE
     Route: 065
     Dates: start: 20130524
  17. MIRTABENE [Concomitant]
     Active Substance: MIRTAZAPINE
     Route: 065
     Dates: start: 20130420, end: 20130516
  18. IXEL [Concomitant]
     Active Substance: MILNACIPRAN HYDROCHLORIDE
     Route: 065
     Dates: start: 20130325, end: 20130325
  19. CHLORHEXAMED [Concomitant]
     Route: 065
     Dates: start: 20130415, end: 20130513
  20. MEXALEN [Concomitant]
     Active Substance: LUBIPROSTONE
     Route: 065
     Dates: start: 20130517, end: 20130517
  21. SOLUDACORTIN [Concomitant]
     Route: 042
     Dates: start: 20130515, end: 20130517
  22. NOVALGIN (AUSTRIA) [Concomitant]
     Dosage: 2 DAILY
     Route: 065
     Dates: start: 20130517, end: 20130517
  23. LYRICA [Concomitant]
     Active Substance: PREGABALIN
     Route: 065
     Dates: start: 20130528, end: 20130528
  24. COPEGUS [Concomitant]
     Active Substance: RIBAVIRIN
     Dosage: SINCE MONTHS
     Route: 065
     Dates: start: 20130325
  25. SEROQUEL [Suspect]
     Active Substance: QUETIAPINE FUMARATE
     Route: 048
     Dates: start: 20130410, end: 20130424
  26. SEROQUEL [Suspect]
     Active Substance: QUETIAPINE FUMARATE
     Route: 048
     Dates: start: 20130425, end: 20130425
  27. MIRTABENE [Concomitant]
     Active Substance: MIRTAZAPINE
     Route: 065
     Dates: start: 20130321, end: 20130408
  28. MIRTABENE [Concomitant]
     Active Substance: MIRTAZAPINE
     Route: 065
     Dates: start: 20130409, end: 20130419
  29. SEROQUEL [Suspect]
     Active Substance: QUETIAPINE FUMARATE
     Route: 048
     Dates: start: 20130325, end: 20130331
  30. RIVOTRIL [Concomitant]
     Active Substance: CLONAZEPAM
     Route: 065
     Dates: start: 20130508, end: 20130512
  31. NEXIUM [Concomitant]
     Active Substance: ESOMEPRAZOLE MAGNESIUM
     Route: 048
     Dates: start: 20130525
  32. NICOTINE. [Concomitant]
     Active Substance: NICOTINE
     Route: 065
     Dates: start: 20130515, end: 20130528
  33. TUSSAMAG [Concomitant]
     Dosage: 1-3X/D 1 MB
     Route: 065
     Dates: start: 20130524
  34. REBETOL [Suspect]
     Active Substance: RIBAVIRIN
     Indication: PRODUCT USED FOR UNKNOWN INDICATION
     Route: 065
     Dates: start: 20130325, end: 20130514
  35. SEROQUEL [Suspect]
     Active Substance: QUETIAPINE FUMARATE
     Indication: PRODUCT USED FOR UNKNOWN INDICATION
     Route: 048
     Dates: start: 20130329, end: 20130409
  36. SEROQUEL [Suspect]
     Active Substance: QUETIAPINE FUMARATE
     Route: 048
     Dates: start: 20130530
  37. MIRTABENE [Concomitant]
     Active Substance: MIRTAZAPINE
     Route: 065
     Dates: start: 20130517, end: 20130528
  38. SOLUDACORTIN [Concomitant]
     Route: 065
     Dates: start: 20130521, end: 20130523
  39. ZITHROMAX [Concomitant]
     Active Substance: AZITHROMYCIN DIHYDRATE
     Dosage: 1X1
     Route: 065
     Dates: start: 20130524, end: 20130526
  40. IXEL [Concomitant]
     Active Substance: MILNACIPRAN HYDROCHLORIDE
     Route: 065
     Dates: start: 20130409, end: 20130410
  41. MEXALEN [Concomitant]
     Active Substance: LUBIPROSTONE
     Route: 065
     Dates: start: 20130514, end: 20130516
  42. NEXIUM [Concomitant]
     Active Substance: ESOMEPRAZOLE MAGNESIUM
     Route: 048
     Dates: start: 20130514, end: 20130524
  43. KALIORAL [Concomitant]
     Route: 065
     Dates: start: 20130514
  44. NICOTINE. [Concomitant]
     Active Substance: NICOTINE
     Route: 065
     Dates: start: 20130514
  45. NOVALGIN (AUSTRIA) [Concomitant]
     Route: 042
     Dates: start: 20130528, end: 20130528
  46. LYRICA [Concomitant]
     Active Substance: PREGABALIN
     Route: 065
     Dates: start: 20130525, end: 20130526
  47. NEBILENIN [Concomitant]
     Route: 065
     Dates: start: 20130528
  48. SEROQUEL [Suspect]
     Active Substance: QUETIAPINE FUMARATE
     Route: 048
     Dates: start: 20130401, end: 20130422
  49. CIPRALEX [Concomitant]
     Active Substance: ESCITALOPRAM OXALATE
     Route: 065
     Dates: start: 20130329, end: 20130405
  50. CIPRALEX [Concomitant]
     Active Substance: ESCITALOPRAM OXALATE
     Route: 065
     Dates: start: 20130406, end: 20130528
  51. CIPRALEX [Concomitant]
     Active Substance: ESCITALOPRAM OXALATE
     Route: 065
     Dates: start: 20130530, end: 20130530
  52. NICOTINE. [Concomitant]
     Active Substance: NICOTINE
     Route: 065
     Dates: start: 20130529
  53. NOVALGIN (AUSTRIA) [Concomitant]
     Dosage: 3 DAILY
     Route: 065
     Dates: start: 20130518, end: 20130518
  54. LYRICA [Concomitant]
     Active Substance: PREGABALIN
     Route: 065
     Dates: start: 20130527, end: 20130527

REACTIONS (1)
  - Acute respiratory distress syndrome [Recovered/Resolved]

NARRATIVE: CASE EVENT DATE: 20130506
